FAERS Safety Report 5700006-6 (Version None)
Quarter: 2008Q2

REPORT INFORMATION
  Report Type: 
  Country: None (occurrence: None)
  Receive Date: 20080410
  Receipt Date: 20080407
  Transmission Date: 20081010
  Serious: Yes (Hospitalization)
  Sender: FDA-Public Use
  Company Number: NL-ASTRAZENECA-2008AC00851

PATIENT
  Age: 22627 Day
  Sex: Female
  Weight: 73 kg

DRUGS (1)
  1. CRESTOR [Suspect]
     Route: 048
     Dates: start: 19971110, end: 20080122

REACTIONS (2)
  - HAEMATURIA [None]
  - MUSCLE SPASMS [None]
